FAERS Safety Report 6645306-0 (Version None)
Quarter: 2010Q1

REPORT INFORMATION
  Report Type: 
  Country: None (occurrence: None)
  Receive Date: 20100322
  Receipt Date: 20090512
  Transmission Date: 20100710
  Serious: Yes (Hospitalization)
  Sender: FDA-Public Use
  Company Number: IN-SANOFI-AVENTIS-A01200905030

PATIENT
  Age: 7 Year
  Sex: Female

DRUGS (5)
  1. CHLOROQUINE PHOSPHATE [Suspect]
     Dosage: DOSE TEXT: TOTAL DOSE OF 1.5 G (I.E. 4X THE THERAPEUTIC DOSE OF 25 MG/KG OF BASE)UNIT DOSE: 150 MG
     Route: 048
  2. CHLOROQUINE PHOSPHATE [Suspect]
     Indication: VOMITING
     Dosage: DOSE TEXT: TOTAL DOSE OF 1.5 G (I.E. 4X THE THERAPEUTIC DOSE OF 25 MG/KG OF BASE)UNIT DOSE: 150 MG
     Route: 048
  3. CHLOROQUINE PHOSPHATE [Suspect]
     Indication: ACCIDENTAL OVERDOSE
     Dosage: DOSE TEXT: TOTAL DOSE OF 1.5 G (I.E. 4X THE THERAPEUTIC DOSE OF 25 MG/KG OF BASE)UNIT DOSE: 150 MG
     Route: 048
  4. PARACETAMOL [Concomitant]
     Route: 065
  5. PARACETAMOL [Concomitant]
     Indication: VOMITING
     Route: 065

REACTIONS (5)
  - ABNORMAL BEHAVIOUR [None]
  - ACCIDENTAL OVERDOSE [None]
  - LOGORRHOEA [None]
  - PSYCHOTIC DISORDER [None]
  - RESTLESSNESS [None]
